FAERS Safety Report 11871124 (Version 5)
Quarter: 2016Q2

REPORT INFORMATION
  Report Type: Report from Study
  Country: FR (occurrence: FR)
  Receive Date: 20151228
  Receipt Date: 20160610
  Transmission Date: 20160815
  Serious: Yes (Hospitalization)
  Sender: FDA-Public Use
  Company Number: FR-EISAI MEDICAL RESEARCH-EC-2015-013071

PATIENT
  Age: 5 Year
  Sex: Female
  Weight: 17.3 kg

DRUGS (8)
  1. LENVATINIB [Suspect]
     Active Substance: LENVATINIB
     Route: 048
     Dates: start: 20160119, end: 20160224
  2. AMLOR [Concomitant]
     Active Substance: AMLODIPINE BESYLATE
  3. LENVATINIB [Suspect]
     Active Substance: LENVATINIB
     Route: 048
     Dates: start: 20151231, end: 20160114
  4. LENVATINIB [Suspect]
     Active Substance: LENVATINIB
     Route: 048
     Dates: start: 20151208, end: 20151222
  5. L-THYROXINE [Concomitant]
     Active Substance: LEVOTHYROXINE
  6. LENVATINIB [Suspect]
     Active Substance: LENVATINIB
     Indication: NEOPLASM MALIGNANT
     Route: 048
     Dates: start: 20151117, end: 20151207
  7. MICROPAKINE [Concomitant]
     Active Substance: VALPROIC ACID
  8. BACTRIM [Concomitant]
     Active Substance: SULFAMETHOXAZOLE\TRIMETHOPRIM

REACTIONS (3)
  - Pneumonia [Recovered/Resolved]
  - Hypertension [Recovered/Resolved]
  - Pain management [Not Recovered/Not Resolved]

NARRATIVE: CASE EVENT DATE: 20151222
